FAERS Safety Report 25574045 (Version 5)
Quarter: 2025Q4

REPORT INFORMATION
  Report Type: Spontaneous
  Country: US (occurrence: US)
  Receive Date: 20250717
  Receipt Date: 20251216
  Transmission Date: 20260117
  Serious: No
  Sender: NOVARTIS
  Company Number: US-002147023-NVSC2025US110455

PATIENT
  Sex: Female

DRUGS (2)
  1. MEKINIST [Suspect]
     Active Substance: TRAMETINIB DIMETHYL SULFOXIDE
     Indication: Ovarian neoplasm
     Dosage: 2 MG, QD
     Route: 048
     Dates: start: 202506
  2. MEKINIST [Suspect]
     Active Substance: TRAMETINIB DIMETHYL SULFOXIDE
     Dosage: 1.5 MG, QD (STRENGTH 0.5 MG)
     Route: 048
     Dates: start: 202506

REACTIONS (15)
  - Acne [Unknown]
  - Rash [Unknown]
  - Off label use [Unknown]
  - Joint swelling [Unknown]
  - Asthenia [Unknown]
  - Diarrhoea [Unknown]
  - Vision blurred [Unknown]
  - Dry mouth [Unknown]
  - Skin fissures [Unknown]
  - Skin haemorrhage [Unknown]
  - Hypotension [Unknown]
  - Fatigue [Unknown]
  - Nausea [Unknown]
  - Dizziness [Unknown]
  - Alopecia [Unknown]
